FAERS Safety Report 7997163-8 (Version None)
Quarter: 2011Q4

REPORT INFORMATION
  Report Type: 
  Country: None (occurrence: None)
  Receive Date: 20111221
  Receipt Date: 20111213
  Transmission Date: 20120403
  Serious: No
  Sender: FDA-Public Use
  Company Number: US-B.I. PHARMACEUTICALS,INC./RIDGEFIELD-2011-BP-28068BP

PATIENT
  Sex: Female

DRUGS (4)
  1. MICARDIS [Concomitant]
     Indication: HYPERTENSION
     Dosage: 80 MG
     Route: 048
     Dates: start: 20111213
  2. AMLODIPINE [Concomitant]
     Indication: HYPERTENSION
     Dosage: 2.5 MG
     Route: 048
     Dates: start: 20111213
  3. MICARDIS HCT [Suspect]
     Indication: HYPERTENSION
     Route: 048
     Dates: start: 20090101, end: 20111212
  4. ZOLOFT [Concomitant]
     Indication: NERVOUSNESS
     Dosage: 25 MG
     Route: 048
     Dates: start: 20111213

REACTIONS (2)
  - POLLAKIURIA [None]
  - RENAL DISORDER [None]
